FAERS Safety Report 6293787-7 (Version None)
Quarter: 2009Q3

REPORT INFORMATION
  Report Type: 
  Country: None (occurrence: None)
  Receive Date: 20090731
  Receipt Date: 20090731
  Transmission Date: 20100115
  Serious: Yes (Life-Threatening)
  Sender: FDA-Public Use
  Company Number: None

PATIENT
  Sex: Female

DRUGS (1)
  1. KEPPRA [Suspect]
     Dosage: 500 MG TABS TAKE 3 TABS TWICE DAILY PO
     Route: 048

REACTIONS (1)
  - NO ADVERSE EVENT [None]
